FAERS Safety Report 19648849 (Version 2)
Quarter: 2021Q4

REPORT INFORMATION
  Report Type: Report from Study
  Country: US (occurrence: US)
  Receive Date: 20210803
  Receipt Date: 20211004
  Transmission Date: 20220303
  Serious: Yes (Hospitalization)
  Sender: FDA-Public Use
  Company Number: US-BIOGEN-2021BI01035076

PATIENT
  Sex: Male

DRUGS (1)
  1. PLEGRIDY [Suspect]
     Active Substance: PEGINTERFERON BETA-1A
     Indication: Multiple sclerosis
     Route: 058
     Dates: start: 2017

REACTIONS (6)
  - Dizziness [Unknown]
  - Dehydration [Unknown]
  - Cerebral haemorrhage [Unknown]
  - Renal failure [Unknown]
  - Blood pressure abnormal [Unknown]
  - Anxiety [Unknown]
